FAERS Safety Report 20960038 (Version 1)
Quarter: 2022Q2

REPORT INFORMATION
  Report Type: Spontaneous
  Country: CO (occurrence: CO)
  Receive Date: 20220615
  Receipt Date: 20220615
  Transmission Date: 20220721
  Serious: Yes (Other)
  Sender: FDA-Public Use
  Company Number: CO-AMGEN-COLSP2021013731

PATIENT
  Age: 44 Year
  Sex: Male
  Weight: 58 kg

DRUGS (13)
  1. MVASI [Suspect]
     Active Substance: BEVACIZUMAB-AWWB
     Indication: Rectosigmoid cancer
     Dosage: 276.5 MILLIGRAM, QD
     Route: 042
     Dates: start: 20200919
  2. MVASI [Suspect]
     Active Substance: BEVACIZUMAB-AWWB
     Dosage: 294.5 MILLIGRAM, QD
     Route: 042
     Dates: start: 20220420
  3. FOSAPREPITANT [Concomitant]
     Active Substance: FOSAPREPITANT
     Indication: Rectosigmoid cancer
     Dosage: 150 MILLIGRAM, QD
     Route: 042
     Dates: start: 20200919
  4. ONDANSETRON [Concomitant]
     Active Substance: ONDANSETRON
     Indication: Rectosigmoid cancer
     Dosage: 16 MILLIGRAM, QD
     Route: 042
     Dates: start: 20200919
  5. DEXAMETHASONE PHOSPHATE [Concomitant]
     Active Substance: DEXAMETHASONE PHOSPHATE
     Indication: Rectosigmoid cancer
     Dosage: 16 MILLIGRAM, QD
     Route: 042
     Dates: start: 20200919
  6. IRINOTECAN [Concomitant]
     Active Substance: IRINOTECAN
     Indication: Rectosigmoid cancer
     Dosage: 293.4 MILLIGRAM, QD
     Route: 042
     Dates: start: 20200919
  7. FLUOROURACIL [Concomitant]
     Active Substance: FLUOROURACIL
     Indication: Rectosigmoid cancer
     Dosage: 3912 MILLIGRAM, QD
     Route: 042
     Dates: start: 20200919
  8. LEUCOVORIN CALCIUM [Concomitant]
     Active Substance: LEUCOVORIN CALCIUM
     Indication: Rectosigmoid cancer
     Dosage: 625 MILLIGRAM, QD
     Route: 042
     Dates: start: 20200919
  9. ESCITALOPRAM OXALATE [Concomitant]
     Active Substance: ESCITALOPRAM OXALATE
     Indication: Cognitive disorder
     Dosage: 10 MILLIGRAM, QD FOR 90 DAYS
     Route: 048
     Dates: start: 20210109
  10. FLUOROURACIL\LEUCOVORIN CALCIUM\OXALIPLATIN [Concomitant]
     Active Substance: FLUOROURACIL\LEUCOVORIN CALCIUM\OXALIPLATIN
     Dosage: UNK
  11. FLUOROURACIL\IRINOTECAN\LEUCOVORIN\OXALIPLATIN [Concomitant]
     Active Substance: FLUOROURACIL\IRINOTECAN\LEUCOVORIN\OXALIPLATIN
     Dosage: UNK
  12. PALONOSETRON [Concomitant]
     Active Substance: PALONOSETRON
     Dosage: 0.25 MILLIGRAM, QD
     Route: 040
  13. ATROPINE SULFATE [Concomitant]
     Active Substance: ATROPINE SULFATE
     Dosage: UNK UNK, QD
     Route: 030

REACTIONS (8)
  - Adenocarcinoma [Unknown]
  - Hepatotoxicity [Recovering/Resolving]
  - Chest discomfort [Not Recovered/Not Resolved]
  - Discomfort [Not Recovered/Not Resolved]
  - Dyspepsia [Not Recovered/Not Resolved]
  - Dizziness [Not Recovered/Not Resolved]
  - Headache [Recovered/Resolved]
  - Nausea [Not Recovered/Not Resolved]

NARRATIVE: CASE EVENT DATE: 20210123
